FAERS Safety Report 16544033 (Version 1)
Quarter: 2019Q3

REPORT INFORMATION
  Report Type: Spontaneous
  Country: DE (occurrence: DE)
  Receive Date: 20190709
  Receipt Date: 20190709
  Transmission Date: 20191004
  Serious: Yes (Congenital Anomaly, Other)
  Sender: FDA-Public Use
  Company Number: DE-TORRENT-00014483

PATIENT
  Age: 1 Day
  Sex: Female
  Weight: 4 kg

DRUGS (4)
  1. L-THYROXIN [Concomitant]
     Active Substance: LEVOTHYROXINE SODIUM
     Indication: HYPOTHYROIDISM
     Dosage: 175 [G/D]
     Route: 064
     Dates: start: 20170715, end: 20180425
  2. AMOXICILLIN. [Concomitant]
     Active Substance: AMOXICILLIN
     Indication: ABSCESS LIMB
     Dosage: 1500 [MG/D]
     Route: 064
  3. SERTRALINE [Suspect]
     Active Substance: SERTRALINE HYDROCHLORIDE
     Indication: DEPRESSION
     Dosage: 100 [MG/D]/ DOSE REDUCTION 5 WEEKS BEFORE THE ESTIMATED DATE OF DELIVERY.
     Route: 064
     Dates: start: 20170715, end: 20180425
  4. PARACETAMOL [Concomitant]
     Active Substance: ACETAMINOPHEN
     Indication: HEADACHE
     Dosage: 500 [MG/D ]/ IN TOTAL FOR 7 DAYS
     Route: 064

REACTIONS (7)
  - Congenital hydronephrosis [Unknown]
  - Foetal exposure during pregnancy [Unknown]
  - Congenital ureterovesical junction anomaly [Recovered/Resolved with Sequelae]
  - Hepatitis neonatal [Recovering/Resolving]
  - Congenital megaureter [Recovered/Resolved with Sequelae]
  - Pyelonephritis [Recovered/Resolved]
  - Congenital renal cyst [Unknown]

NARRATIVE: CASE EVENT DATE: 20180425
